FAERS Safety Report 6724161-4 (Version None)
Quarter: 2010Q2

REPORT INFORMATION
  Report Type: 
  Country: None (occurrence: None)
  Receive Date: 20100513
  Receipt Date: 20100427
  Transmission Date: 20101027
  Serious: Yes (Death, Hospitalization)
  Sender: FDA-Public Use
  Company Number: US-ROCHE-699577

PATIENT
  Sex: Female
  Weight: 61 kg

DRUGS (13)
  1. BEVACIZUMAB [Suspect]
     Dosage: ON DAY 1
     Route: 042
     Dates: start: 20100122
  2. PEMETREXED [Suspect]
     Route: 042
     Dates: start: 20100122
  3. CARBOPLATIN [Suspect]
     Dosage: DOSE:6 AUC
     Route: 042
     Dates: start: 20100122
  4. OXYCONTIN [Concomitant]
  5. OXYCODONE [Concomitant]
     Dates: start: 20100113
  6. FENTANYL [Concomitant]
     Dates: start: 20100129
  7. FOLIC ACID [Concomitant]
     Dates: start: 20100121
  8. ZOFRAN [Concomitant]
     Indication: NAUSEA
  9. MIRALAX [Concomitant]
     Dates: start: 20100225
  10. SODIUM PHOSPHATES [Concomitant]
     Indication: CONSTIPATION
     Dates: start: 20100225, end: 20100225
  11. MEGACE [Concomitant]
     Indication: DECREASED APPETITE
     Dates: start: 20100225
  12. VITAMIN B-12 [Concomitant]
     Dates: start: 20100121
  13. ADVAIR DISKUS 100/50 [Concomitant]

REACTIONS (3)
  - CONSTIPATION [None]
  - LARGE INTESTINE PERFORATION [None]
  - SEPSIS [None]
